FAERS Safety Report 4372397-2 (Version None)
Quarter: 2004Q2

REPORT INFORMATION
  Report Type: 
  Country: None (occurrence: None)
  Receive Date: 20040603
  Receipt Date: 20040519
  Transmission Date: 20050107
  Serious: Yes (Other)
  Sender: FDA-Public Use
  Company Number: 8025

PATIENT

DRUGS (1)
  1. PAMIDRONATE [Suspect]
     Dosage: 60 MG FREQ IV
     Route: 042

REACTIONS (1)
  - PHLEBITIS [None]
